FAERS Safety Report 15809154 (Version 3)
Quarter: 2019Q2

REPORT INFORMATION
  Report Type: Spontaneous
  Country: US (occurrence: US)
  Receive Date: 20190110
  Receipt Date: 20190627
  Transmission Date: 20190711
  Serious: No
  Sender: FDA-Public Use
  Company Number: US-ACTELION-A-US2018-183966

PATIENT
  Sex: Female

DRUGS (3)
  1. TRACLEER [Suspect]
     Active Substance: BOSENTAN
     Dosage: 62.5 MG, QD
     Route: 048
     Dates: start: 20181219
  2. TRACLEER [Suspect]
     Active Substance: BOSENTAN
     Dosage: 125 MG, BID
     Route: 048
  3. TRACLEER [Suspect]
     Active Substance: BOSENTAN
     Indication: RAYNAUD^S PHENOMENON
     Dosage: 62.5 MG, UNK
     Route: 048

REACTIONS (10)
  - Poor peripheral circulation [Unknown]
  - Unevaluable event [Not Recovered/Not Resolved]
  - Therapeutic response decreased [Unknown]
  - Impaired healing [Unknown]
  - Peripheral swelling [Unknown]
  - Rhinorrhoea [Unknown]
  - Cough [Not Recovered/Not Resolved]
  - Localised infection [Unknown]
  - Pain in extremity [Unknown]
  - Skin ulcer [Unknown]
